FAERS Safety Report 22141996 (Version 1)
Quarter: 2023Q1

REPORT INFORMATION
  Report Type: Spontaneous
  Country: CN (occurrence: CN)
  Receive Date: 20230327
  Receipt Date: 20230327
  Transmission Date: 20230417
  Serious: Yes (Hospitalization)
  Sender: FDA-Public Use
  Company Number: CN-002147023-NVSC2023CN067763

PATIENT
  Age: 12 Year
  Sex: Female
  Weight: 26 kg

DRUGS (1)
  1. TEGRETOL [Suspect]
     Active Substance: CARBAMAZEPINE
     Indication: Seizure
     Dosage: 3 DOSAGE FORM, QD
     Route: 048
     Dates: start: 20230218, end: 20230307

REACTIONS (9)
  - Rash [Unknown]
  - Oral mucosal erythema [Unknown]
  - Pyrexia [Unknown]
  - Swelling [Unknown]
  - Oral herpes [Unknown]
  - Pain [Unknown]
  - Purulent discharge [Unknown]
  - Drug hypersensitivity [Unknown]
  - Pruritus [Unknown]

NARRATIVE: CASE EVENT DATE: 20230304
